FAERS Safety Report 8480610-5 (Version None)
Quarter: 2012Q3

REPORT INFORMATION
  Report Type: 
  Country: None (occurrence: None)
  Receive Date: 20120702
  Receipt Date: 20120622
  Transmission Date: 20120928
  Serious: No
  Sender: FDA-Public Use
  Company Number: US-BIOGENIDEC-2012BI022359

PATIENT
  Sex: Female

DRUGS (1)
  1. AVONEX [Suspect]
     Indication: MULTIPLE SCLEROSIS
     Route: 030
     Dates: start: 20000501

REACTIONS (14)
  - CRYING [None]
  - HYPOTONIA [None]
  - HYPERSOMNIA [None]
  - SYNCOPE [None]
  - DIZZINESS [None]
  - COGNITIVE DISORDER [None]
  - TREMOR [None]
  - DYSGRAPHIA [None]
  - ANGER [None]
  - ASTHENIA [None]
  - VISUAL IMPAIRMENT [None]
  - HALLUCINATION [None]
  - EMOTIONAL DISTRESS [None]
  - HEADACHE [None]
